FAERS Safety Report 6110250-4 (Version None)
Quarter: 2009Q1

REPORT INFORMATION
  Report Type: 
  Country: None (occurrence: None)
  Receive Date: 20090309
  Receipt Date: 20090309
  Transmission Date: 20090719
  Serious: Yes (Disabling)
  Sender: FDA-Public Use
  Company Number: None

PATIENT
  Age: 54 Year
  Sex: Female
  Weight: 83.9154 kg

DRUGS (1)
  1. CHANTIX [Suspect]
     Dosage: 1 MG 2X DAILY PO
     Route: 048
     Dates: start: 20081201, end: 20090303

REACTIONS (3)
  - CHEST PAIN [None]
  - HEART RATE DECREASED [None]
  - HYPOAESTHESIA [None]
